FAERS Safety Report 6060070-4 (Version None)
Quarter: 2009Q1

REPORT INFORMATION
  Report Type: 
  Country: None (occurrence: None)
  Receive Date: 20090130
  Receipt Date: 20090121
  Transmission Date: 20090719
  Serious: Yes (Other)
  Sender: FDA-Public Use
  Company Number: US-ELI_LILLY_AND_COMPANY-US200803003715

PATIENT
  Sex: Male
  Weight: 104.76 kg

DRUGS (4)
  1. ZYPREXA [Suspect]
     Dosage: 15 MG, UNK
     Dates: start: 20050901, end: 20060901
  2. ARIPIPRAZOLE [Concomitant]
     Dates: start: 20060915, end: 20061201
  3. QUETIAPINE FUMARATE [Concomitant]
     Dates: start: 20051201, end: 20060601
  4. DEPAKOTE [Concomitant]
     Dates: start: 20060915, end: 20070314

REACTIONS (8)
  - BLOOD CHOLESTEROL INCREASED [None]
  - BLOOD TRIGLYCERIDES INCREASED [None]
  - DIABETES MELLITUS [None]
  - HEPATITIS VIRAL [None]
  - HUNGER [None]
  - HYPERTENSION [None]
  - THIRST [None]
  - VISION BLURRED [None]
